FAERS Safety Report 16679943 (Version 2)
Quarter: 2019Q3

REPORT INFORMATION
  Report Type: Not Available
  Country: US (occurrence: US)
  Receive Date: 20190807
  Receipt Date: 20190829
  Transmission Date: 20191004
  Serious: No
  Sender: FDA-Public Use
  Company Number: US-NEUROCRINE BIOSCIENCES INC.-2019NBI02080

PATIENT
  Age: 73 Year

DRUGS (5)
  1. OLANZAPINE. [Concomitant]
     Active Substance: OLANZAPINE
     Dosage: 1.0 (UNIT UNSPECIFIED)
  2. LORAZEPAM. [Concomitant]
     Active Substance: LORAZEPAM
     Dosage: 1.0 (UNIT UNSPECIFIED)
  3. TRAZODONE [Concomitant]
     Active Substance: TRAZODONE HYDROCHLORIDE
     Dosage: 0.25 (UNIT UNSPECIFIED)
  4. VENLAFAXINE [Concomitant]
     Active Substance: VENLAFAXINE HYDROCHLORIDE
     Dosage: 150 (UNIT UNSPECIFIED)
  5. INGREZZA [Suspect]
     Active Substance: VALBENAZINE
     Indication: TARDIVE DYSKINESIA
     Dosage: STARTER PACK
     Dates: start: 20190710, end: 20190722

REACTIONS (5)
  - Fall [Recovered/Resolved]
  - Influenza like illness [Recovered/Resolved]
  - Coordination abnormal [Recovered/Resolved]
  - Bruxism [Recovered/Resolved]
  - Malaise [Recovered/Resolved]

NARRATIVE: CASE EVENT DATE: 20190716
